FAERS Safety Report 9814870 (Version 4)
Quarter: 2018Q2

REPORT INFORMATION
  Report Type: Spontaneous
  Country: JP (occurrence: JP)
  Receive Date: 20140113
  Receipt Date: 20180612
  Transmission Date: 20180711
  Serious: Yes (Hospitalization, Other)
  Sender: FDA-Public Use
  Company Number: JP-GLAXOSMITHKLINE-B0652765A

PATIENT
  Age: 61 Year
  Sex: Male

DRUGS (9)
  1. LAMOTRIGINE. [Suspect]
     Active Substance: LAMOTRIGINE
     Indication: EPILEPSY
     Dosage: 25 MG, QOD
     Route: 048
     Dates: start: 20100209, end: 20100222
  2. LAMOTRIGINE. [Suspect]
     Active Substance: LAMOTRIGINE
     Dosage: 25 MG, QD
     Route: 048
     Dates: start: 20100223, end: 20100309
  3. LAMOTRIGINE. [Suspect]
     Active Substance: LAMOTRIGINE
     Dosage: 50 MG, 1D
     Route: 048
  4. ALEVIATIN [Concomitant]
     Active Substance: PHENYTOIN SODIUM
     Indication: LIVER DISORDER
     Dosage: UNK
     Dates: start: 200907
  5. MYSTAN [Concomitant]
     Active Substance: CLOBAZAM
     Indication: LIVER DISORDER
     Dosage: UNK
     Dates: start: 201001
  6. DEPAKENE [Concomitant]
     Active Substance: VALPROIC ACID
     Indication: EPILEPSY
     Dosage: 200 MG, BID
     Dates: start: 20100209
  7. EXCEGRAN [Concomitant]
     Active Substance: ZONISAMIDE
     Indication: LIVER DISORDER
     Dosage: UNK
     Dates: start: 201001
  8. TEGRETOL [Concomitant]
     Active Substance: CARBAMAZEPINE
     Indication: LIVER DISORDER
     Dosage: UNK
     Dates: start: 200911
  9. DEPAKENE [Concomitant]
     Active Substance: VALPROIC ACID
     Dosage: 200 MG, BID
     Route: 048
     Dates: start: 20100223

REACTIONS (14)
  - Pyrexia [Recovering/Resolving]
  - Hepatic function abnormal [Unknown]
  - Renal disorder [Recovering/Resolving]
  - Drug reaction with eosinophilia and systemic symptoms [Recovered/Resolved]
  - Rash [Recovered/Resolved]
  - Diarrhoea [Recovering/Resolving]
  - Skin exfoliation [Unknown]
  - White blood cell count increased [Unknown]
  - Liver disorder [Recovering/Resolving]
  - Swelling face [Recovering/Resolving]
  - Generalised erythema [Recovering/Resolving]
  - Erythema [Recovering/Resolving]
  - Seizure [Unknown]
  - Skin exfoliation [Recovering/Resolving]

NARRATIVE: CASE EVENT DATE: 2010
